FAERS Safety Report 5400892-3 (Version None)
Quarter: 2007Q3

REPORT INFORMATION
  Report Type: 
  Country: None (occurrence: None)
  Receive Date: 20070725
  Receipt Date: 20070717
  Transmission Date: 20080115
  Serious: Yes (Hospitalization, Other)
  Sender: FDA-Public Use
  Company Number: 016147

PATIENT
  Age: 71 Year
  Sex: Male
  Weight: 77.1 kg

DRUGS (1)
  1. CLARAVIS [Suspect]
     Indication: ROSACEA
     Dosage: 20 MG, QD, ORAL
     Route: 048
     Dates: start: 20070307, end: 20070717

REACTIONS (3)
  - CHEST PAIN [None]
  - CORONARY ARTERIAL STENT INSERTION [None]
  - LIPIDS ABNORMAL [None]
